FAERS Safety Report 9507312 (Version 2)
Quarter: 2014Q1

REPORT INFORMATION
  Report Type: Spontaneous
  Country: US (occurrence: None)
  Receive Date: 20130305
  Receipt Date: 20140306
  Transmission Date: 20141002
  Serious: Yes (Other)
  Sender: FDA-Public Use
  Company Number: 163-21880-12113352

PATIENT
  Age: 64 Year
  Sex: Female

DRUGS (7)
  1. REVLIMID [Suspect]
     Indication: PLASMA CELL MYELOMA
     Route: 048
     Dates: start: 200905
  2. GLIMEPIRIDE [Concomitant]
  3. JANUVIA [Concomitant]
  4. NEXIUM [Concomitant]
  5. SIMVASTATIN [Concomitant]
  6. ZETIA [Concomitant]
  7. EXFORGE [Concomitant]

REACTIONS (2)
  - Drug dose omission [None]
  - Inappropriate schedule of drug administration [None]
